FAERS Safety Report 9603691 (Version 2)
Quarter: 2013Q4

REPORT INFORMATION
  Report Type: Spontaneous
  Country: NL (occurrence: NL)
  Receive Date: 20131007
  Receipt Date: 20131007
  Transmission Date: 20140711
  Serious: Yes (Other)
  Sender: FDA-Public Use
  Company Number: NL-009507513-1212NLD005851

PATIENT
  Age: 45 Year
  Sex: Female

DRUGS (2)
  1. IMPLANON NXT [Suspect]
     Indication: HORMONE LEVEL ABNORMAL
     Dosage: UNK
     Route: 030
     Dates: start: 20110608, end: 20130128
  2. IMPLANON NXT [Suspect]
     Dosage: UNK
     Route: 058
     Dates: start: 2013

REACTIONS (10)
  - Meningioma [Unknown]
  - Ovarian cyst [Unknown]
  - Uterine leiomyoma [Unknown]
  - Tension headache [Recovered/Resolved]
  - Hypertonia [Recovered/Resolved]
  - Metrorrhagia [Recovered/Resolved]
  - Device deployment issue [Recovered/Resolved]
  - Incorrect route of drug administration [Recovered/Resolved]
  - Device difficult to use [Unknown]
  - Oesophageal disorder [Unknown]
